FAERS Safety Report 13145064 (Version 1)
Quarter: 2017Q1

REPORT INFORMATION
  Report Type: Spontaneous
  Country: US (occurrence: US)
  Receive Date: 20170124
  Receipt Date: 20170124
  Transmission Date: 20170428
  Serious: No
  Sender: FDA-Public Use
  Company Number: US-PFIZER INC-3237888

PATIENT
  Age: 20 Year
  Sex: Female

DRUGS (3)
  1. SODIUM CHLORIDE. [Suspect]
     Active Substance: SODIUM CHLORIDE
     Indication: DRUG THERAPY
     Dosage: UNK
     Route: 042
     Dates: start: 20160331
  2. ONDANSETRON [Suspect]
     Active Substance: ONDANSETRON
     Indication: NAUSEA
     Dosage: 4 MG, UNK
     Route: 040
     Dates: start: 20160331
  3. DIAZEPAM. [Suspect]
     Active Substance: DIAZEPAM
     Indication: VERTIGO
     Dosage: APPROXIMATELY 5MG
     Route: 040
     Dates: start: 20160331

REACTIONS (5)
  - No adverse event [Recovered/Resolved]
  - Poor quality drug administered [Recovered/Resolved]
  - Product deposit [Recovered/Resolved]
  - Drug chemical incompatibility [Recovered/Resolved]
  - Liquid product physical issue [Recovered/Resolved]

NARRATIVE: CASE EVENT DATE: 20160331
